FAERS Safety Report 14770472 (Version 1)
Quarter: 2018Q2

REPORT INFORMATION
  Report Type: Spontaneous
  Country: SE (occurrence: SE)
  Receive Date: 20180417
  Receipt Date: 20180417
  Transmission Date: 20180711
  Serious: Yes (Other)
  Sender: FDA-Public Use
  Company Number: PHHY2018SE065533

PATIENT
  Age: 88 Year
  Sex: Female

DRUGS (1)
  1. DUOTRAV (ALC) [Suspect]
     Active Substance: TIMOLOL MALEATE\TRAVOPROST
     Indication: GLAUCOMA
     Dosage: UNK
     Route: 047
     Dates: start: 2017

REACTIONS (6)
  - Eye pruritus [Not Recovered/Not Resolved]
  - Eye abscess [Not Recovered/Not Resolved]
  - Procedural haemorrhage [Unknown]
  - Nightmare [Not Recovered/Not Resolved]
  - Diplopia [Not Recovered/Not Resolved]
  - Iris hypopigmentation [Not Recovered/Not Resolved]

NARRATIVE: CASE EVENT DATE: 201710
